FAERS Safety Report 17901530 (Version 1)
Quarter: 2020Q2

REPORT INFORMATION
  Report Type: Report from Study
  Country: US (occurrence: US)
  Receive Date: 20200616
  Receipt Date: 20200616
  Transmission Date: 20200714
  Serious: Yes (Other)
  Sender: FDA-Public Use
  Company Number: US-JNJFOC-20200612887

PATIENT
  Sex: Male

DRUGS (9)
  1. OMEPRAZOLE. [Concomitant]
     Active Substance: OMEPRAZOLE
  2. STELARA [Suspect]
     Active Substance: USTEKINUMAB
     Indication: PSORIASIS
     Route: 058
  3. LOSARTAN. [Concomitant]
     Active Substance: LOSARTAN
  4. DOXAZOSIN [Concomitant]
     Active Substance: DOXAZOSIN MESYLATE
  5. STELARA [Suspect]
     Active Substance: USTEKINUMAB
  6. FLUTICASONE. [Concomitant]
     Active Substance: FLUTICASONE
  7. PRAVASTATIN. [Concomitant]
     Active Substance: PRAVASTATIN
  8. OFLOXACIN. [Concomitant]
     Active Substance: OFLOXACIN
  9. NAPROXEN. [Concomitant]
     Active Substance: NAPROXEN

REACTIONS (1)
  - COVID-19 [Recovered/Resolved]
